FAERS Safety Report 9595994 (Version 2)
Quarter: 2013Q4

REPORT INFORMATION
  Report Type: Spontaneous
  Country: US (occurrence: US)
  Receive Date: 20131004
  Receipt Date: 20131115
  Transmission Date: 20140711
  Serious: Yes (Hospitalization, Other)
  Sender: FDA-Public Use
  Company Number: US-PFIZER INC-2013279821

PATIENT
  Age: 50 Year
  Sex: Female
  Weight: 61.22 kg

DRUGS (2)
  1. XELJANZ [Suspect]
     Indication: RHEUMATOID ARTHRITIS
     Dosage: 5 MG, 2X/DAY
     Route: 048
     Dates: start: 20130225, end: 20130520
  2. CARDIZEM [Suspect]
     Indication: HYPERTENSION
     Dosage: 480 MG, DAILY
     Dates: end: 201305

REACTIONS (9)
  - Small intestinal haemorrhage [Recovering/Resolving]
  - Ulcer haemorrhage [Recovering/Resolving]
  - Sepsis [Recovering/Resolving]
  - Pneumonia [Recovering/Resolving]
  - Gastrointestinal disorder [Recovering/Resolving]
  - Enanthema [Recovering/Resolving]
  - Malaise [Recovering/Resolving]
  - Immune system disorder [Recovering/Resolving]
  - Weight decreased [Unknown]
